FAERS Safety Report 13747873 (Version 1)
Quarter: 2017Q3

REPORT INFORMATION
  Report Type: Spontaneous
  Country: FR (occurrence: FR)
  Receive Date: 20170713
  Receipt Date: 20170713
  Transmission Date: 20171127
  Serious: Yes (Other)
  Sender: FDA-Public Use
  Company Number: FR-BAXTER-2017BAX026883

PATIENT
  Age: 79 Year
  Sex: Female

DRUGS (21)
  1. POLARAMINE [Suspect]
     Active Substance: DEXCHLORPHENIRAMINE MALEATE
     Indication: ALLERGY PROPHYLAXIS
     Route: 040
     Dates: start: 20161215, end: 20161215
  2. DIAMICRON [Concomitant]
     Active Substance: GLICLAZIDE
     Indication: PRODUCT USED FOR UNKNOWN INDICATION
     Route: 048
  3. ENDOXAN 1000 MG, POUDRE POUR SOLUTION INJECTABLE [Suspect]
     Active Substance: CYCLOPHOSPHAMIDE
     Dosage: CYCLES 2-7 OF R-CHOP REGIMEN
     Route: 042
  4. MABTHERA [Suspect]
     Active Substance: RITUXIMAB
     Indication: MANTLE CELL LYMPHOMA STAGE IV
     Dosage: FIRST CYCLE OF R-CHOP REGIMEN
     Route: 042
     Dates: start: 20161215, end: 20161215
  5. VINCRISTINE HOSPIRA [Suspect]
     Active Substance: VINCRISTINE
     Indication: MANTLE CELL LYMPHOMA STAGE IV
     Dosage: STRENGTH: 2 MG/2 ML, FIRST CYCLE OF R-CHOP REGIMEN
     Route: 042
     Dates: start: 20161215, end: 20161215
  6. MESNA EG [Suspect]
     Active Substance: MESNA
     Indication: DRUG TOXICITY PROPHYLAXIS
     Dosage: DOSAGE FORM: INJECTABLE SOLUTION FOR PERFUSION
     Route: 042
     Dates: start: 20161215, end: 20161215
  7. ONDANSETRON ACCORD [Suspect]
     Active Substance: ONDANSETRON
     Indication: PROPHYLAXIS OF NAUSEA AND VOMITING
     Route: 042
     Dates: start: 20161215, end: 20161215
  8. COTAREG [Concomitant]
     Active Substance: HYDROCHLOROTHIAZIDE\VALSARTAN
     Indication: PRODUCT USED FOR UNKNOWN INDICATION
     Dosage: STRENGTH : 160/12.5 UNITS NOT REPORTED, DOSE: 160 MG/ 12.5 MG
     Route: 048
  9. PREDNISONE. [Suspect]
     Active Substance: PREDNISONE
     Indication: MANTLE CELL LYMPHOMA STAGE IV
     Dosage: FIRST CYCLE OF R-CHOP REGIMEN
     Route: 065
     Dates: start: 20161215, end: 20161215
  10. SPECIAFOLDINE [Suspect]
     Active Substance: FOLIC ACID
     Indication: PRODUCT USED FOR UNKNOWN INDICATION
     Dosage: DOSE: 2 TABLETS
     Route: 048
     Dates: start: 20161215
  11. ZELTREX [Suspect]
     Active Substance: VALACYCLOVIR HYDROCHLORIDE
     Indication: PRODUCT USED FOR UNKNOWN INDICATION
     Route: 048
     Dates: start: 20161215
  12. KARDEGIC [Concomitant]
     Active Substance: ASPIRIN LYSINE
     Indication: PRODUCT USED FOR UNKNOWN INDICATION
     Dosage: DOSAGE FORM: POWDER FOR ORAL SOLUTION IN BAGS, DOSE: 1 BAG
     Route: 048
  13. VINCRISTINE HOSPIRA [Suspect]
     Active Substance: VINCRISTINE
     Dosage: STRENGTH: 2 MG/2 ML, CYCLES 2-7 OF R-CHOP REGIMEN
     Route: 042
  14. DOXORUBICIN TEVA [Suspect]
     Active Substance: DOXORUBICIN
     Indication: MANTLE CELL LYMPHOMA STAGE IV
     Dosage: FIRST CYCLE OF R-CHOP REGIMEN
     Route: 042
     Dates: start: 20161215, end: 20161215
  15. DOXORUBICIN TEVA [Suspect]
     Active Substance: DOXORUBICIN
     Dosage: CYCLES 2-7 OF R-CHOP REGIMEN
     Route: 042
  16. PREDNISONE. [Suspect]
     Active Substance: PREDNISONE
     Dosage: CYCLES 2-7 OF R-CHOP REGIMEN
     Route: 065
  17. BACTRIM [Suspect]
     Active Substance: SULFAMETHOXAZOLE\TRIMETHOPRIM
     Indication: PRODUCT USED FOR UNKNOWN INDICATION
     Dosage: DOSE: 3 TABLETS
     Route: 048
     Dates: start: 20161215
  18. PRAVASTATIN. [Concomitant]
     Active Substance: PRAVASTATIN
     Indication: PRODUCT USED FOR UNKNOWN INDICATION
     Route: 048
  19. ENDOXAN 1000 MG, POUDRE POUR SOLUTION INJECTABLE [Suspect]
     Active Substance: CYCLOPHOSPHAMIDE
     Indication: MANTLE CELL LYMPHOMA STAGE IV
     Dosage: FIRST CYCLE OF R-CHOP REGIMEN
     Route: 042
     Dates: start: 20161215, end: 20161215
  20. MABTHERA [Suspect]
     Active Substance: RITUXIMAB
     Dosage: CYCLES 2-7 OF R-CHOP REGIMEN
     Route: 042
  21. METFORMINE [Concomitant]
     Active Substance: METFORMIN HYDROCHLORIDE
     Indication: PRODUCT USED FOR UNKNOWN INDICATION
     Route: 048

REACTIONS (1)
  - Polyarthritis [Recovered/Resolved]

NARRATIVE: CASE EVENT DATE: 201612
